FAERS Safety Report 18367595 (Version 1)
Quarter: 2020Q4

REPORT INFORMATION
  Report Type: Not Available
  Country: US (occurrence: US)
  Receive Date: 20201009
  Receipt Date: 20201009
  Transmission Date: 20210114
  Serious: No
  Sender: FDA-Public Use
  Company Number: US-C B FLEET CO INC-201909-US-003123

PATIENT
  Age: 60 Year
  Sex: Female

DRUGS (1)
  1. MONISTAT 3 COMBINATION PACK [Suspect]
     Active Substance: MICONAZOLE NITRATE
     Indication: FUNGAL INFECTION
     Dosage: INSERTED 2 OVULES AND USED EXTERNAL CREAM.

REACTIONS (1)
  - Vulvovaginal injury [Not Recovered/Not Resolved]
